FAERS Safety Report 4527257-0 (Version None)
Quarter: 2004Q4

REPORT INFORMATION
  Report Type: 
  Country: None (occurrence: None)
  Receive Date: 20041215
  Receipt Date: 20041206
  Transmission Date: 20050328
  Serious: Yes (Other)
  Sender: FDA-Public Use
  Company Number: PHFR2004GB04493

PATIENT
  Age: 43 Year
  Sex: Female
  Weight: 70 kg

DRUGS (1)
  1. TERBINAFINE HCL [Suspect]
     Indication: NAIL TINEA
     Route: 048
     Dates: start: 20040920, end: 20041101

REACTIONS (4)
  - AGEUSIA [None]
  - DEPRESSION [None]
  - DIARRHOEA [None]
  - MOOD SWINGS [None]
